FAERS Safety Report 25300160 (Version 1)
Quarter: 2025Q2

REPORT INFORMATION
  Report Type: Report from Study
  Country: IN (occurrence: IN)
  Receive Date: 20250512
  Receipt Date: 20250512
  Transmission Date: 20250716
  Serious: Yes (Death, Hospitalization)
  Sender: ASTELLAS
  Company Number: IN-ASTELLAS-2025-AER-025503

PATIENT
  Age: 37 Year
  Sex: Female

DRUGS (1)
  1. TACROLIMUS [Suspect]
     Active Substance: TACROLIMUS
     Indication: Product used for unknown indication
     Route: 048
     Dates: start: 20240109

REACTIONS (2)
  - Blood bilirubin increased [Fatal]
  - Liver injury [Fatal]

NARRATIVE: CASE EVENT DATE: 20250225
